FAERS Safety Report 7938520-5 (Version None)
Quarter: 2011Q4

REPORT INFORMATION
  Report Type: 
  Country: None (occurrence: None)
  Receive Date: 20111123
  Receipt Date: 20111109
  Transmission Date: 20120403
  Serious: Yes (Hospitalization, Other)
  Sender: FDA-Public Use
  Company Number: JP-ROCHE-726482

PATIENT
  Sex: Female

DRUGS (76)
  1. KALIMATE [Concomitant]
     Indication: RENAL FAILURE
     Dosage: DOSE FORM REPORTED AS POR
     Route: 048
     Dates: start: 20100714, end: 20100805
  2. RISPERDAL [Concomitant]
     Route: 048
     Dates: start: 20100902, end: 20100902
  3. RISPERDAL [Concomitant]
     Dates: start: 20100921, end: 20100922
  4. POSTERISAN [Concomitant]
     Indication: HAEMORRHOIDS
     Dosage: PROPER QUANTI
     Route: 061
     Dates: start: 20100629, end: 20100831
  5. HEPARIN SODIUM [Concomitant]
     Route: 042
     Dates: start: 20100821, end: 20100901
  6. FLUCONAZOLE [Concomitant]
     Indication: PROPHYLAXIS
     Route: 048
  7. LEVOFLOXACIN [Concomitant]
     Route: 048
     Dates: start: 20100806, end: 20100806
  8. LASIX [Concomitant]
     Route: 042
     Dates: start: 20100806, end: 20100811
  9. LASIX [Concomitant]
     Route: 042
     Dates: start: 20100919, end: 20100919
  10. LORAZEPAM [Concomitant]
     Indication: INSOMNIA
     Route: 048
  11. LENDORMIN [Concomitant]
     Route: 048
     Dates: start: 20100828, end: 20100901
  12. RISPERDAL [Concomitant]
  13. PYRINAZIN [Concomitant]
     Route: 048
     Dates: start: 20101008, end: 20101016
  14. FENTANYL-100 [Concomitant]
     Dosage: DOSE FORM: TAPE, 2.1MG24.2MG
     Route: 062
  15. ASPIRIN [Concomitant]
     Indication: PROPHYLAXIS
     Route: 048
  16. TIMOPTOL [Concomitant]
     Indication: GLAUCOMA
     Dosage: DOSING AMOUNT REPORTED AS 1GTT, FORM: EYE DROPS
     Route: 047
  17. LEVOFLOXACIN [Concomitant]
     Route: 048
     Dates: start: 20100808, end: 20100808
  18. LASIX [Concomitant]
     Route: 042
     Dates: start: 20100831, end: 20100907
  19. LASIX [Concomitant]
     Route: 042
     Dates: start: 20100921, end: 20100928
  20. LASIX [Concomitant]
     Route: 042
     Dates: start: 20100930, end: 20101001
  21. LENDORMIN [Concomitant]
     Indication: INSOMNIA
     Route: 048
     Dates: start: 20100819, end: 20100826
  22. PYRINAZIN [Concomitant]
     Route: 048
  23. HEPARIN SODIUM [Concomitant]
     Indication: PROPHYLAXIS
     Route: 042
     Dates: start: 20100717, end: 20100810
  24. HEPARIN SODIUM [Concomitant]
     Route: 042
     Dates: start: 20100907, end: 20100907
  25. HEPARIN SODIUM [Concomitant]
     Route: 042
     Dates: start: 20100908, end: 20100908
  26. ACTEMRA [Suspect]
     Route: 041
  27. PREDNISOLONE AND PREDNISOLONE ACETATE AND PREDNISOLONE SODIUM SUCCINAT [Suspect]
     Indication: CASTLEMAN'S DISEASE
     Route: 048
     Dates: start: 20100713, end: 20100722
  28. PREDNISOLONE AND PREDNISOLONE ACETATE AND PREDNISOLONE SODIUM SUCCINAT [Suspect]
     Route: 048
     Dates: start: 20100910, end: 20101007
  29. PREDNISOLONE AND PREDNISOLONE ACETATE AND PREDNISOLONE SODIUM SUCCINAT [Suspect]
     Route: 041
     Dates: start: 20100724, end: 20100805
  30. PREDNISOLONE AND PREDNISOLONE ACETATE AND PREDNISOLONE SODIUM SUCCINAT [Suspect]
     Route: 041
     Dates: start: 20100806, end: 20100810
  31. PREDNISOLONE AND PREDNISOLONE ACETATE AND PREDNISOLONE SODIUM SUCCINAT [Suspect]
     Route: 041
     Dates: start: 20100811, end: 20100817
  32. METHYLPREDNISOLONE SODIUM SUCCINATE [Suspect]
     Indication: CASTLEMAN'S DISEASE
     Dosage: ROUTE IV(NOS)
     Route: 042
     Dates: start: 20100721, end: 20100723
  33. MORPHINE [Concomitant]
     Indication: CASTLEMAN'S DISEASE
     Dosage: DOSE FORM REPORTED AS PERORAL LIQUID PREPARATION
     Route: 048
  34. ALBUMINAR [Concomitant]
     Route: 042
     Dates: start: 20100726, end: 20100726
  35. LASIX [Concomitant]
     Indication: RENAL FAILURE
     Dosage: ROUTE: IV(NOS)
     Route: 042
     Dates: start: 20100805, end: 20100805
  36. RISPERDAL [Concomitant]
     Dates: start: 20100903, end: 20100909
  37. LASIX [Concomitant]
     Route: 048
     Dates: start: 20101005, end: 20101104
  38. PROCHLORPERAZINE [Concomitant]
     Indication: PROPHYLAXIS
     Route: 048
     Dates: start: 20101016, end: 20101227
  39. POTASSIUM L-ASPARTATE [Concomitant]
     Route: 042
     Dates: start: 20100830, end: 20100916
  40. ATARAX [Concomitant]
     Route: 040
     Dates: start: 20100816, end: 20100819
  41. LENDORMIN [Concomitant]
     Route: 048
  42. ACYCLOVIR [Concomitant]
     Indication: PROPHYLAXIS
     Route: 048
  43. LASIX [Concomitant]
     Route: 048
     Dates: start: 20100705, end: 20100722
  44. ACTEMRA [Suspect]
     Indication: CASTLEMAN'S DISEASE
     Route: 041
     Dates: start: 20100727, end: 20100914
  45. PREDNISOLONE AND PREDNISOLONE ACETATE AND PREDNISOLONE SODIUM SUCCINAT [Suspect]
     Route: 048
     Dates: start: 20100903, end: 20100909
  46. PREDNISOLONE AND PREDNISOLONE ACETATE AND PREDNISOLONE SODIUM SUCCINAT [Suspect]
     Route: 041
     Dates: start: 20100818, end: 20100824
  47. RABEPRAZOLE SODIUM [Concomitant]
     Indication: PROPHYLAXIS
     Route: 048
  48. LASIX [Concomitant]
     Route: 042
     Dates: start: 20100813, end: 20100830
  49. LASIX [Concomitant]
     Route: 042
     Dates: start: 20100908, end: 20100913
  50. RISPERDAL [Concomitant]
     Dates: start: 20100913, end: 20100920
  51. POTASSIUM L-ASPARTATE [Concomitant]
     Route: 042
     Dates: start: 20100823, end: 20100829
  52. GANCICLOVIR [Suspect]
     Indication: PRODUCT USED FOR UNKNOWN INDICATION
  53. ACTEMRA [Suspect]
     Route: 041
     Dates: start: 20101104, end: 20101104
  54. PREDNISOLONE AND PREDNISOLONE ACETATE AND PREDNISOLONE SODIUM SUCCINAT [Suspect]
     Route: 048
     Dates: start: 20100824, end: 20100902
  55. PREDNISOLONE AND PREDNISOLONE ACETATE AND PREDNISOLONE SODIUM SUCCINAT [Suspect]
     Route: 048
  56. PREDNISOLONE AND PREDNISOLONE ACETATE AND PREDNISOLONE SODIUM SUCCINAT [Suspect]
     Route: 041
     Dates: start: 20100718, end: 20100721
  57. VALGANCICLOVIR [Concomitant]
     Route: 048
     Dates: start: 20101115, end: 20101227
  58. BACTRIM [Concomitant]
     Indication: PROPHYLAXIS
     Route: 048
     Dates: start: 20100713, end: 20100723
  59. ALBUMINAR [Concomitant]
     Indication: CASTLEMAN'S DISEASE
     Dosage: ROUTE: INTRAVENOUS (NOT OTHERWISE SPECIFIED)
     Route: 042
     Dates: start: 20100715, end: 20100718
  60. ALBUMINAR [Concomitant]
     Route: 042
     Dates: start: 20100722, end: 20100724
  61. ALBUMIN TANNATE [Concomitant]
     Route: 048
     Dates: start: 20100806, end: 20100909
  62. LASIX [Concomitant]
     Route: 042
     Dates: start: 20100812, end: 20100812
  63. RISPERDAL [Concomitant]
     Dates: start: 20100923, end: 20101111
  64. MAGMITT [Concomitant]
     Indication: CONSTIPATION
     Route: 048
  65. ALDACTONE [Concomitant]
     Dosage: DOSE FORM: PERORAL AGENT
     Route: 054
     Dates: start: 20101005, end: 20101104
  66. ACTEMRA [Suspect]
     Route: 041
     Dates: start: 20100922, end: 20101020
  67. ALLOPURINOL [Concomitant]
     Indication: HYPERURICAEMIA
     Route: 048
     Dates: start: 20100714, end: 20101109
  68. BACTRIM [Concomitant]
     Route: 048
  69. ALBUMINAR [Concomitant]
     Route: 042
     Dates: start: 20100720, end: 20100720
  70. ALBUMINAR [Concomitant]
     Route: 042
     Dates: start: 20100920, end: 20100920
  71. ALBUMINAR [Concomitant]
     Route: 042
     Dates: start: 20100929, end: 20100929
  72. LAXOBERON [Concomitant]
     Indication: CONSTIPATION
     Dosage: DOSE FORM REPORTED AS PERORAL LIQUID PREPARATION
     Route: 048
     Dates: start: 20100801, end: 20100802
  73. LEVOFLOXACIN [Concomitant]
     Route: 048
     Dates: start: 20100810, end: 20100815
  74. LENDORMIN [Concomitant]
     Route: 048
     Dates: start: 20100902, end: 20100903
  75. HEPARIN SODIUM [Concomitant]
     Route: 042
     Dates: start: 20100815, end: 20100815
  76. HEPARIN SODIUM [Concomitant]
     Route: 042
     Dates: start: 20100903, end: 20100906

REACTIONS (5)
  - CALCIPHYLAXIS [None]
  - URINARY TRACT INFECTION [None]
  - WHITE BLOOD CELL COUNT DECREASED [None]
  - CYTOMEGALOVIRUS INFECTION [None]
  - CEREBRAL INFARCTION [None]
